FAERS Safety Report 5073201-X (Version None)
Quarter: 2006Q3

REPORT INFORMATION
  Report Type: 
  Country: None (occurrence: None)
  Receive Date: 20060802
  Receipt Date: 20060719
  Transmission Date: 20061208
  Serious: Yes (Other)
  Sender: FDA-Public Use
  Company Number: CIP06001654

PATIENT
  Sex: 0

DRUGS (1)
  1. ACTONEL [Suspect]
     Dosage: MG, 1/WEEK, ORAL
     Route: 048

REACTIONS (1)
  - THYROIDECTOMY [None]
